FAERS Safety Report 11797027 (Version 2)
Quarter: 2016Q1

REPORT INFORMATION
  Report Type: Report from Study
  Country: US (occurrence: US)
  Receive Date: 20151203
  Receipt Date: 20160108
  Transmission Date: 20160525
  Serious: Yes (Hospitalization)
  Sender: FDA-Public Use
  Company Number: US-GILEAD-2015-0185657

PATIENT
  Age: 60 Year
  Sex: Male

DRUGS (13)
  1. LOVASTATIN. [Concomitant]
     Active Substance: LOVASTATIN
  2. METOLAZONE. [Concomitant]
     Active Substance: METOLAZONE
  3. POTASSIUM [Concomitant]
     Active Substance: POTASSIUM
  4. METFORMIN [Concomitant]
     Active Substance: METFORMIN HYDROCHLORIDE
  5. AMBRISENTAN [Suspect]
     Active Substance: AMBRISENTAN
     Indication: PULMONARY HYPERTENSION
     Dosage: 10 MG, QD
     Route: 065
     Dates: start: 20150128
  6. SPIRONOLACTONE. [Concomitant]
     Active Substance: SPIRONOLACTONE
  7. CALCIUM + D3                       /00944201/ [Concomitant]
     Active Substance: CALCIUM\CHOLECALCIFEROL
  8. METOPROLOL SUCCINATE. [Concomitant]
     Active Substance: METOPROLOL SUCCINATE
  9. TYVASO [Suspect]
     Active Substance: TREPROSTINIL
     Indication: PRODUCT USED FOR UNKNOWN INDICATION
     Route: 065
  10. TAMSULOSIN [Concomitant]
     Active Substance: TAMSULOSIN
  11. WARFARIN [Concomitant]
     Active Substance: WARFARIN
  12. PREDNISONE. [Concomitant]
     Active Substance: PREDNISONE
  13. FUROSEMIDE. [Concomitant]
     Active Substance: FUROSEMIDE

REACTIONS (2)
  - Fluid retention [Unknown]
  - Dyspnoea [Unknown]
